FAERS Safety Report 9953883 (Version 1)
Quarter: 2014Q1

REPORT INFORMATION
  Report Type: Spontaneous
  Country: US (occurrence: US)
  Receive Date: 20140304
  Receipt Date: 20140304
  Transmission Date: 20141002
  Serious: Yes (Hospitalization)
  Sender: FDA-Public Use
  Company Number: US-B.I. PHARMACEUTICALS,INC./RIDGEFIELD-2014-BI-08540BP

PATIENT
  Age: 66 Year
  Sex: Male

DRUGS (5)
  1. PRADAXA [Suspect]
     Indication: ATRIAL FIBRILLATION
     Dosage: 300 MG
     Route: 048
     Dates: start: 20140211
  2. PRADAXA [Suspect]
     Dosage: 300 MG
     Route: 048
     Dates: start: 2012, end: 20140204
  3. SIMVASTATIN [Concomitant]
     Indication: BLOOD CHOLESTEROL INCREASED
     Route: 048
  4. CARDIZEM [Concomitant]
     Indication: ATRIAL FIBRILLATION
     Dosage: 240 MG
     Route: 048
  5. QUINIPRIL [Concomitant]
     Indication: ATRIAL FIBRILLATION
     Dosage: 40 MG
     Route: 048

REACTIONS (2)
  - Intestinal mass [Recovered/Resolved]
  - Rectal polyp [Recovered/Resolved]
